FAERS Safety Report 4869665-4 (Version None)
Quarter: 2005Q4

REPORT INFORMATION
  Report Type: 
  Country: None (occurrence: None)
  Receive Date: 20051223
  Receipt Date: 20051220
  Transmission Date: 20060501
  Serious: Yes (Life-Threatening)
  Sender: FDA-Public Use
  Company Number: ESWYE250620DEC05

PATIENT
  Age: 45 Year
  Sex: Female

DRUGS (5)
  1. DOBUPAL RETARD (VENLAFAXINE HYDROCHLORIDE) [Suspect]
     Indication: DEPRESSION
     Dosage: 75 MG 1X PER 1 DAY, ORAL
     Route: 048
     Dates: start: 20050101
  2. ANAFRANIL [Suspect]
     Indication: DEPRESSION
     Dosage: 113 MG 1X PER 1 DAY
     Route: 048
     Dates: start: 20050101
  3. EFORTIL                         (ETILEFRINE HYDOCHLORIDE) [Suspect]
     Indication: DEPRESSION
     Dosage: 50 MG 1X PER 1 DAY
     Route: 048
     Dates: start: 20050101
  4. IDALPREM                     (LORAZEPAM) [Suspect]
     Indication: DEPRESSION
     Route: 048
     Dates: start: 20050101
  5. ZYPREXA [Suspect]
     Indication: SCHIZOPHRENIA
     Dosage: 5 MG 1X PER 1 DAY
     Route: 048
     Dates: start: 20050601, end: 20050823

REACTIONS (3)
  - DRUG INTERACTION [None]
  - GRANULOCYTOPENIA [None]
  - LEUKOPENIA [None]
